FAERS Safety Report 22164497 (Version 2)
Quarter: 2023Q2

REPORT INFORMATION
  Report Type: Spontaneous
  Country: GB (occurrence: GB)
  Receive Date: 20230403
  Receipt Date: 20230414
  Transmission Date: 20230722
  Serious: Yes (Other)
  Sender: FDA-Public Use
  Company Number: GB-MHRA-TPP29094949C7769304YC1678814191334

PATIENT
  Age: 24 Year
  Sex: Female
  Weight: 76 kg

DRUGS (3)
  1. ATOMOXETINE HYDROCHLORIDE [Suspect]
     Active Substance: ATOMOXETINE HYDROCHLORIDE
     Indication: Product used for unknown indication
     Dosage: 10 MILLIGRAM, ONCE A DAY
     Route: 048
     Dates: start: 20221230
  2. ATOMOXETINE HYDROCHLORIDE [Suspect]
     Active Substance: ATOMOXETINE HYDROCHLORIDE
     Dosage: UNK
     Route: 065
     Dates: start: 20220209
  3. CILIQUE [Concomitant]
     Indication: Product used for unknown indication
     Dosage: 1 DOSAGE FORM, ONCE A DAY (FOR 21 DAYS; SUBSEQUENT COURSE)
     Route: 065
     Dates: start: 20220209

REACTIONS (1)
  - Petechiae [Recovering/Resolving]
